FAERS Safety Report 4915208-6 (Version None)
Quarter: 2006Q1

REPORT INFORMATION
  Report Type: 
  Country: None (occurrence: None)
  Receive Date: 20060216
  Receipt Date: 20060216
  Transmission Date: 20060701
  Serious: Yes (Hospitalization)
  Sender: FDA-Public Use
  Company Number: None

PATIENT
  Sex: Female
  Weight: 58.9676 kg

DRUGS (5)
  1. ASPIRIN [Suspect]
     Indication: CARDIAC DISORDER
     Dosage: 325 MG PO QD PRIOR TO ADMISSION
     Route: 048
  2. PLAVIX [Suspect]
     Indication: CARDIAC DISORDER
     Dosage: 75 MG PO QD PRIOR TO ADMISSION
     Route: 048
  3. LOPRESSOR [Concomitant]
  4. ZOCOR [Concomitant]
  5. ZETIA [Concomitant]

REACTIONS (2)
  - ABDOMINAL PAIN LOWER [None]
  - MELAENA [None]
